FAERS Safety Report 10539285 (Version 1)
Quarter: 2014Q4

REPORT INFORMATION
  Report Type: Spontaneous
  Country: JP (occurrence: JP)
  Receive Date: 20141023
  Receipt Date: 20141023
  Transmission Date: 20150529
  Serious: Yes (Death, Hospitalization)
  Sender: FDA-Public Use
  Company Number: PHHY2014JP135460

PATIENT
  Age: 34 Year
  Sex: Male

DRUGS (9)
  1. FLUPHENAZINE [Suspect]
     Active Substance: FLUPHENAZINE
     Dosage: 25 MG, UNK
     Route: 030
     Dates: start: 20130213
  2. LITHIUM CARBONATE. [Concomitant]
     Active Substance: LITHIUM CARBONATE
     Indication: PRODUCT USED FOR UNKNOWN INDICATION
     Dosage: 600 MG, UNK
     Route: 065
  3. LITHIUM CARBONATE. [Concomitant]
     Active Substance: LITHIUM CARBONATE
     Dosage: 800 MG, UNK
     Route: 065
  4. ZOTEPINE [Suspect]
     Active Substance: ZOTEPINE
     Indication: PSYCHOTIC DISORDER
     Dosage: 150 MG, UNK
     Route: 065
  5. HALOPERIDOL. [Suspect]
     Active Substance: HALOPERIDOL
     Indication: PSYCHOTIC DISORDER
     Dosage: 9 MG, UNK
     Route: 065
  6. RISPERIDONE. [Suspect]
     Active Substance: RISPERIDONE
     Indication: PSYCHOTIC DISORDER
     Dosage: 6 MG, UNK
     Route: 065
  7. FLUPHENAZINE [Suspect]
     Active Substance: FLUPHENAZINE
     Indication: PSYCHOTIC DISORDER
     Dosage: 25 MG, QMO
     Route: 030
  8. BIPERIDEN [Concomitant]
     Active Substance: BIPERIDEN
     Indication: PRODUCT USED FOR UNKNOWN INDICATION
     Dosage: 6 MG, QD
     Route: 065
  9. VALPROIC ACID. [Concomitant]
     Active Substance: VALPROIC ACID
     Indication: PRODUCT USED FOR UNKNOWN INDICATION
     Dosage: 600 MG, UNK
     Route: 065

REACTIONS (14)
  - Muscle rigidity [Unknown]
  - Agitation [Unknown]
  - Respiratory failure [Fatal]
  - Hyperhidrosis [Unknown]
  - Aggression [Unknown]
  - Neuroleptic malignant syndrome [Unknown]
  - Dysstasia [Unknown]
  - Dysphagia [Unknown]
  - Leukocytosis [Unknown]
  - Pyrexia [Unknown]
  - Tachypnoea [Unknown]
  - Speech disorder [Unknown]
  - Mental disorder [Unknown]
  - Salivary hypersecretion [Unknown]

NARRATIVE: CASE EVENT DATE: 20130211
